FAERS Safety Report 8252979-8 (Version None)
Quarter: 2012Q2

REPORT INFORMATION
  Report Type: 
  Country: None (occurrence: None)
  Receive Date: 20120402
  Receipt Date: 20110909
  Transmission Date: 20120825
  Serious: Yes (Other)
  Sender: FDA-Public Use
  Company Number: BR-MERCK-1203BRA00050

PATIENT
  Age: 58 Year
  Sex: Female
  Weight: 89 kg

DRUGS (4)
  1. COZAAR [Suspect]
     Indication: HYPERTENSION
     Route: 065
  2. OMEPRAZOLE [Concomitant]
     Indication: GASTRIC DISORDER
     Route: 065
  3. MODURETIC 5-50 [Suspect]
     Indication: HYPERTENSION
     Route: 065
  4. AMLODIPINE BESYLATE [Concomitant]
     Indication: HYPERTENSION
     Route: 065

REACTIONS (6)
  - RENAL IMPAIRMENT [None]
  - PSORIATIC ARTHROPATHY [None]
  - DIABETES MELLITUS [None]
  - NERVOUSNESS [None]
  - CHOLELITHIASIS [None]
  - PSORIASIS [None]
